FAERS Safety Report 8035722-7 (Version None)
Quarter: 2012Q1

REPORT INFORMATION
  Report Type: 
  Country: None (occurrence: None)
  Receive Date: 20120111
  Receipt Date: 20120106
  Transmission Date: 20120608
  Serious: Yes (Other)
  Sender: FDA-Public Use
  Company Number: US-JNJFOC-20120102078

PATIENT
  Sex: Female
  Weight: 65.77 kg

DRUGS (2)
  1. CLONAZEPAM [Concomitant]
     Indication: ANXIETY
     Route: 048
     Dates: start: 20040101
  2. ELMIRON [Suspect]
     Indication: CYSTITIS INTERSTITIAL
     Route: 048
     Dates: start: 20070101, end: 20090101

REACTIONS (2)
  - COELIAC DISEASE [None]
  - CYSTITIS INTERSTITIAL [None]
